FAERS Safety Report 7494133-3 (Version None)
Quarter: 2011Q2

REPORT INFORMATION
  Report Type: 
  Country: None (occurrence: None)
  Receive Date: 20110520
  Receipt Date: 20110513
  Transmission Date: 20111010
  Serious: Yes (Other)
  Sender: FDA-Public Use
  Company Number: US-JNJFOC-20110508051

PATIENT
  Sex: Male
  Weight: 77.11 kg

DRUGS (2)
  1. AVELOX [Suspect]
     Indication: ANTI-INFECTIVE THERAPY
     Route: 065
  2. LEVAQUIN [Suspect]
     Indication: ANTI-INFECTIVE THERAPY
     Route: 048

REACTIONS (1)
  - JOINT INJURY [None]
